FAERS Safety Report 10193355 (Version 2)
Quarter: 2014Q2

REPORT INFORMATION
  Report Type: Spontaneous
  Country: US (occurrence: US)
  Receive Date: 20140524
  Receipt Date: 20140610
  Transmission Date: 20141212
  Serious: Yes (Other)
  Sender: FDA-Public Use
  Company Number: US-SA-2013SA122173

PATIENT
  Age: 51 Year
  Sex: Female
  Weight: 102 kg

DRUGS (8)
  1. LANTUS SOLOSTAR [Suspect]
     Indication: TYPE 2 DIABETES MELLITUS
     Route: 065
     Dates: start: 20131120
  2. LANTUS SOLOSTAR [Suspect]
     Indication: TYPE 2 DIABETES MELLITUS
     Dosage: DOSE:20 UNIT(S)
     Route: 051
     Dates: start: 20131120
  3. AMARYL [Suspect]
     Route: 065
  4. METFORMIN [Suspect]
     Route: 065
  5. JANUVIA [Suspect]
     Route: 065
  6. SOLOSTAR [Concomitant]
  7. PROZAC [Concomitant]
  8. LOMOTIL [Concomitant]

REACTIONS (8)
  - Palpitations [Unknown]
  - Abdominal distension [Not Recovered/Not Resolved]
  - Overweight [Unknown]
  - Weight increased [Not Recovered/Not Resolved]
  - Abdominal discomfort [Not Recovered/Not Resolved]
  - Blood glucose increased [Not Recovered/Not Resolved]
  - Injection site pain [Unknown]
  - Injection site warmth [Unknown]
